FAERS Safety Report 6649233-4 (Version None)
Quarter: 2010Q1

REPORT INFORMATION
  Report Type: 
  Country: None (occurrence: None)
  Receive Date: 20100324
  Receipt Date: 20100322
  Transmission Date: 20100710
  Serious: Yes (Hospitalization)
  Sender: FDA-Public Use
  Company Number: US-ELI_LILLY_AND_COMPANY-US201003005895

PATIENT
  Sex: Female

DRUGS (2)
  1. HUMALOG MIX 75/25 [Suspect]
     Indication: DIABETES MELLITUS
     Dosage: 11 U, EACH EVENING
  2. HUMALOG MIX 75/25 [Suspect]
     Dosage: 15 U, EACH EVENING

REACTIONS (4)
  - BLOOD GLUCOSE INCREASED [None]
  - DIABETES MELLITUS INADEQUATE CONTROL [None]
  - EXPIRED DRUG ADMINISTERED [None]
  - INTENTIONAL DRUG MISUSE [None]
